FAERS Safety Report 14911739 (Version 2)
Quarter: 2018Q2

REPORT INFORMATION
  Report Type: Spontaneous
  Country: US (occurrence: US)
  Receive Date: 20180518
  Receipt Date: 20180615
  Transmission Date: 20180711
  Serious: No
  Sender: FDA-Public Use
  Company Number: US-ASTRAZENECA-2018SE54052

PATIENT
  Age: 807 Month
  Sex: Male
  Weight: 93 kg

DRUGS (12)
  1. BYDUREON [Suspect]
     Active Substance: EXENATIDE
     Indication: TYPE 2 DIABETES MELLITUS
     Route: 058
     Dates: start: 20151130
  2. PRINIVIL [Concomitant]
     Active Substance: LISINOPRIL
  3. INDERAL [Concomitant]
     Active Substance: PROPRANOLOL HYDROCHLORIDE
  4. GLUCOTROL [Concomitant]
     Active Substance: GLIPIZIDE
  5. GLUCOPHAGE [Concomitant]
     Active Substance: METFORMIN HYDROCHLORIDE
  6. HYDRODIURIL [Concomitant]
     Active Substance: HYDROCHLOROTHIAZIDE
  7. LIPITOR [Concomitant]
     Active Substance: ATORVASTATIN CALCIUM
  8. CARDURA [Concomitant]
     Active Substance: DOXAZOSIN MESYLATE
  9. BYDUREON [Suspect]
     Active Substance: EXENATIDE
     Indication: TYPE 2 DIABETES MELLITUS
     Route: 058
     Dates: start: 20171030, end: 20180123
  10. BYDUREON [Suspect]
     Active Substance: EXENATIDE
     Indication: TYPE 2 DIABETES MELLITUS
     Route: 058
     Dates: start: 201803
  11. FLONASE [Concomitant]
     Active Substance: FLUTICASONE PROPIONATE
  12. ZESTRIL [Concomitant]
     Active Substance: LISINOPRIL

REACTIONS (3)
  - Device malfunction [Unknown]
  - Underdose [Unknown]
  - Abdominal discomfort [Not Recovered/Not Resolved]

NARRATIVE: CASE EVENT DATE: 201803
